FAERS Safety Report 20990930 (Version 1)
Quarter: 2022Q2

REPORT INFORMATION
  Report Type: Spontaneous
  Country: IT (occurrence: IT)
  Receive Date: 20220622
  Receipt Date: 20220622
  Transmission Date: 20220721
  Serious: Yes (Other)
  Sender: FDA-Public Use
  Company Number: None

PATIENT
  Age: 56 Year
  Sex: Female
  Weight: 96 kg

DRUGS (8)
  1. TRASTUZUMAB [Suspect]
     Active Substance: TRASTUZUMAB
     Indication: Metaplastic breast carcinoma
     Dosage: 510 MILLIGRAM, CYCLICAL
     Route: 042
     Dates: start: 20220328
  2. PERTUZUMAB [Suspect]
     Active Substance: PERTUZUMAB
     Indication: Metaplastic breast carcinoma
     Dosage: 420 MILLIGRAM
     Route: 042
     Dates: start: 20220328
  3. TAMOXIFEN CITRATE [Concomitant]
     Active Substance: TAMOXIFEN CITRATE
     Indication: Metaplastic breast carcinoma
     Dosage: 20 MILLIGRAM, QD
     Route: 048
     Dates: start: 20160627, end: 20220608
  4. CETIRIZINE [Concomitant]
     Active Substance: CETIRIZINE HYDROCHLORIDE
     Dosage: 10 MILLIGRAM, QD
     Route: 048
  5. BISOPROLOL FUMARATE [Concomitant]
     Active Substance: BISOPROLOL FUMARATE
     Dosage: 3.75 MILLIGRAM, QD
     Route: 048
  6. OMEPRAZOLE [Concomitant]
     Active Substance: OMEPRAZOLE
     Dosage: 20 MILLIGRAM, QD
     Route: 048
  7. CHOLECALCIFEROL [Concomitant]
     Active Substance: CHOLECALCIFEROL
     Dosage: 25000 KILO-INTERNATIONAL UNIT
     Route: 048
  8. BILASTINE [Concomitant]
     Active Substance: BILASTINE
     Dosage: 10 MILLIGRAM, AS NECESSARY
     Route: 048

REACTIONS (2)
  - Erysipelas [Recovered/Resolved]
  - Off label use [Unknown]

NARRATIVE: CASE EVENT DATE: 20220331
